FAERS Safety Report 8663029 (Version 2)
Quarter: 2013Q4

REPORT INFORMATION
  Report Type: Report from Study
  Country: JP (occurrence: JP)
  Receive Date: 20120712
  Receipt Date: 20131105
  Transmission Date: 20140711
  Serious: Yes (Death, Life-Threatening)
  Sender: FDA-Public Use
  Company Number: JP-009507513-1001USA00888

PATIENT
  Age: 41 Year
  Sex: Male

DRUGS (12)
  1. ISENTRESS [Suspect]
     Indication: HIV INFECTION
     Dosage: 400 MG, BID
     Route: 048
     Dates: start: 20070924, end: 20100104
  2. EPIVIR [Suspect]
     Indication: HIV INFECTION
     Dosage: DIVIDED DOSE FREQUENCY UNKNOWN
     Route: 048
     Dates: start: 20010806, end: 20011021
  3. EPIVIR [Suspect]
     Dosage: 300 MG, QD
     Route: 048
     Dates: start: 20040927, end: 20041103
  4. EPIVIR [Suspect]
     Dosage: 150 MG, BID
     Route: 048
     Dates: start: 20051012, end: 20051110
  5. EPIVIR [Suspect]
     Dosage: 300 MG, QD
     Route: 048
     Dates: start: 20051111, end: 20060714
  6. EPIVIR [Suspect]
     Dosage: 50 MG, QD
     Route: 048
     Dates: start: 20060823, end: 20100104
  7. NORVIR [Suspect]
     Indication: HIV INFECTION
     Dosage: 100 MG, BID
     Route: 048
     Dates: start: 20050216, end: 20050608
  8. NORVIR [Suspect]
     Dosage: 100 MG, BID
     Route: 048
     Dates: start: 20070924, end: 20100104
  9. PREZISTA [Suspect]
     Indication: HIV INFECTION
     Dosage: 600 MG, BID
     Route: 048
     Dates: start: 20070924, end: 20100104
  10. ZERIT [Concomitant]
     Indication: HIV INFECTION
     Dosage: DIVIDED DOSE FREQUENCY UNKNOWN
     Route: 048
     Dates: start: 20060823, end: 20090304
  11. NOVACT M [Concomitant]
     Indication: FACTOR IX DEFICIENCY
     Dosage: 1000 UNITS X 0-4 TIMES/MONTH
     Route: 042
     Dates: end: 20100104
  12. MS CONTIN [Concomitant]
     Indication: NEURALGIA
     Dosage: 10 MG, BID
     Route: 048
     Dates: start: 20090619, end: 20100104

REACTIONS (5)
  - Brain stem haemorrhage [Fatal]
  - Pneumonia [Recovering/Resolving]
  - Pneumonia [Recovered/Resolved]
  - Neuralgia [Not Recovered/Not Resolved]
  - Hypertension [Not Recovered/Not Resolved]
